FAERS Safety Report 14922282 (Version 1)
Quarter: 2018Q2

REPORT INFORMATION
  Report Type: Spontaneous
  Country: DE (occurrence: DE)
  Receive Date: 20180522
  Receipt Date: 20180522
  Transmission Date: 20180711
  Serious: Yes (Hospitalization)
  Sender: FDA-Public Use
  Company Number: DE-CONCORDIA PHARMACEUTICALS INC.-E2B_00011743

PATIENT
  Age: 88 Year
  Sex: Male
  Weight: 63 kg

DRUGS (9)
  1. PREDNISOLONE. [Suspect]
     Active Substance: PREDNISOLONE
     Dosage: 5 MG, PLAN, TABLETTEN
     Route: 048
  2. KALINOR - RETARD P [Concomitant]
     Dosage: 600 MG, 1-0-0-0, KAPSELN
     Route: 048
  3. DEKRISTOL 20000 I.E. [Concomitant]
     Dosage: 20000 IE / WOCHE, 1-0-0-0, KAPSELN
     Route: 048
  4. SPIOLTO RESPIMAT 2,5MIKROGRAMM/2,5MIKROGRAMM [Concomitant]
     Dosage: 2.5|2.5 ?G, 2-0-0-0, DOSIERAEROSOL
     Route: 055
  5. PANTOPRAZOL [Concomitant]
     Active Substance: PANTOPRAZOLE SODIUM
     Dosage: 40 MG, 0-0-0-1, TABLETTEN
     Route: 048
  6. MIRTAZAPINE. [Concomitant]
     Active Substance: MIRTAZAPINE
     Dosage: 15 MG, 0-0-0-0.5, TABLETTEN
     Route: 048
  7. MACROGOL ABZ PULVER ZUR HERSTELLUNG EINER L?SUNG ZUM EINNEHMEN [Concomitant]
     Dosage: 13.125|0.35|0.18|0.05 G, BEDARF, BEUTEL
     Route: 048
  8. NOVAMINSULFON LICHTENSTEIN 500MG [Concomitant]
     Dosage: 500 MG, 1-1-1-1, TABLETTEN
     Route: 048
  9. TILIDIN COMP.-CT 50MG/4MG PRO 0,72ML L?SUNG [Concomitant]
     Dosage: 50|4 MG, BEDARF, RETARD-TABLETTEN
     Route: 048

REACTIONS (3)
  - Pain [Unknown]
  - Cachexia [Unknown]
  - Haematemesis [Unknown]
